FAERS Safety Report 5156840-7 (Version None)
Quarter: 2006Q4

REPORT INFORMATION
  Report Type: 
  Country: None (occurrence: None)
  Receive Date: 20061114
  Receipt Date: 20061106
  Transmission Date: 20070319
  Serious: Yes (Hospitalization, Other)
  Sender: FDA-Public Use
  Company Number: DEWYE423406NOV06

PATIENT
  Age: 73 Year
  Sex: Female

DRUGS (13)
  1. VENLAFAXINE HCL [Suspect]
     Indication: DEPRESSION
     Dosage: 75 MG 1X PER 1 DAY ORAL
     Route: 048
     Dates: start: 20050902, end: 20050909
  2. METOPROLOL TARTRATE [Suspect]
     Dosage: 75 MG 1 X PER 1 DAY ORAL FOR A LONGER PERIOD
     Route: 048
  3. RAMIPRIL [Suspect]
     Dosage: 5 MG 1X PER 1 DAY ORAL
     Route: 048
     Dates: start: 20050908
  4. DELIX PLUS (HYDROCHLOROTHIAZIDE/RAMIPRIL) [Suspect]
     Dosage: 1 TABLET PER DAY ORAL
     Route: 048
     Dates: start: 20050902, end: 20050907
  5. DISALUNIL (HYDROCHLOROTHIAZIDE) [Suspect]
     Dosage: 12.5 MG 1X PER 1 DAY ORAL
     Route: 048
     Dates: start: 20050908, end: 20050909
  6. NEXIUM [Suspect]
     Dosage: 20 MG 1X PER 1 DAY ORAL FOR MONTHS
     Route: 048
  7. TOREM (TORASEMIDE) [Suspect]
     Dosage: 10 MG 1X PER 1 DAY ORAL  FOR MONTHS
     Route: 048
     Dates: end: 20050909
  8. ASS-RATIOPHARM (ACETYLSALICYLIC ACID) [Concomitant]
  9. GLUCOBAY [Concomitant]
  10. ALLOPURINOL [Concomitant]
  11. LOCOL (FLUVASTATIN SODIUM) [Concomitant]
  12. LEVOTHYROXINE SODIUM [Concomitant]
  13. CIPROFLOXACIN [Concomitant]

REACTIONS (5)
  - ASTHENIA [None]
  - DRUG INTERACTION [None]
  - FATIGUE [None]
  - HYPOKALAEMIA [None]
  - HYPONATRAEMIA [None]
